FAERS Safety Report 9725281 (Version 1)
Quarter: 2013Q4

REPORT INFORMATION
  Report Type: Spontaneous
  Country: US (occurrence: None)
  Receive Date: 20131129
  Receipt Date: 20131129
  Transmission Date: 20140711
  Serious: Yes (Life-Threatening)
  Sender: FDA-Public Use
  Company Number: 54973 AE # 1515

PATIENT
  Age: 73 Year
  Sex: Male

DRUGS (1)
  1. HYLAND^S [Suspect]
     Indication: STRESS
     Dosage: 2 TABS BID-TID X 2 DAYS

REACTIONS (1)
  - Blood pressure increased [None]
